FAERS Safety Report 25439217 (Version 1)
Quarter: 2025Q2

REPORT INFORMATION
  Report Type: Spontaneous
  Country: US (occurrence: None)
  Receive Date: 20250612
  Receipt Date: 20250612
  Transmission Date: 20250716
  Serious: Yes (Disabling, Other)
  Sender: FDA-CTU
  Company Number: None

PATIENT
  Age: 52 Year
  Sex: Female
  Weight: 54 kg

DRUGS (1)
  1. XYZAL [Suspect]
     Active Substance: LEVOCETIRIZINE DIHYDROCHLORIDE
     Indication: Food allergy
     Dosage: OTHER QUANTITY : 1 TABLET(S);?FREQUENCY : EVERY 12 HOURS;?
     Route: 048

REACTIONS (15)
  - Withdrawal syndrome [None]
  - Pruritus [None]
  - Scratch [None]
  - Rash [None]
  - Skin disorder [None]
  - Skin haemorrhage [None]
  - Skin discharge [None]
  - Skin burning sensation [None]
  - Lip swelling [None]
  - Erythema [None]
  - Skin exfoliation [None]
  - Sleep disorder [None]
  - Quality of life decreased [None]
  - Rebound effect [None]
  - Physical product label issue [None]

NARRATIVE: CASE EVENT DATE: 20250612
